FAERS Safety Report 13583376 (Version 1)
Quarter: 2017Q2

REPORT INFORMATION
  Report Type: Spontaneous
  Country: CA (occurrence: CA)
  Receive Date: 20170525
  Receipt Date: 20170525
  Transmission Date: 20170830
  Serious: Yes (Other)
  Sender: FDA-Public Use
  Company Number: CA-TEVA-770232ACC

PATIENT
  Age: 26 Year
  Sex: Female
  Weight: 68.1 kg

DRUGS (3)
  1. NUVARING [Suspect]
     Active Substance: ETHINYL ESTRADIOL\ETONOGESTREL
     Route: 065
  2. DULOXETINE. [Suspect]
     Active Substance: DULOXETINE
     Indication: DEPRESSION
     Dosage: 120 MILLIGRAM/MILLILITERS DAILY;
     Route: 048
  3. NAPROXEN. [Concomitant]
     Active Substance: NAPROXEN

REACTIONS (6)
  - Affect lability [Recovering/Resolving]
  - Feelings of worthlessness [Recovering/Resolving]
  - Anger [Recovering/Resolving]
  - Mood altered [Recovering/Resolving]
  - Condition aggravated [Recovering/Resolving]
  - Crying [Recovering/Resolving]
